FAERS Safety Report 14836722 (Version 1)
Quarter: 2018Q2

REPORT INFORMATION
  Report Type: Spontaneous
  Country: BR (occurrence: BR)
  Receive Date: 20180502
  Receipt Date: 20180502
  Transmission Date: 20180711
  Serious: Yes (Life-Threatening, Hospitalization)
  Sender: FDA-Public Use
  Company Number: PHHY2018BR076049

PATIENT
  Sex: Male

DRUGS (2)
  1. FERROUS SULFATE. [Concomitant]
     Active Substance: FERROUS SULFATE
     Indication: FOETAL EXPOSURE DURING PREGNANCY
     Dosage: MATERNAL DOSE: 1 DF, QD
     Route: 064
  2. CLAXAM [Suspect]
     Active Substance: AMOXICILLIN\CLAVULANATE POTASSIUM
     Indication: FOETAL EXPOSURE DURING PREGNANCY
     Dosage: MATERNAL DOSE: 1DF, Q8H FOR 7 DAYS
     Route: 064
     Dates: start: 20180410

REACTIONS (4)
  - Foetal exposure during pregnancy [Unknown]
  - Infection [Recovering/Resolving]
  - Forceps delivery [None]
  - Maternal drugs affecting foetus [None]
